FAERS Safety Report 9698334 (Version 5)
Quarter: 2015Q2

REPORT INFORMATION
  Report Type: Spontaneous
  Country: US (occurrence: US)
  Receive Date: 20131120
  Receipt Date: 20150402
  Transmission Date: 20150821
  Serious: Yes (Life-Threatening, Hospitalization)
  Sender: FDA-Public Use
  Company Number: US-BAYER-2013-139621

PATIENT
  Age: 18 Year
  Sex: Female
  Weight: 75.74 kg

DRUGS (1)
  1. MIRENA [Suspect]
     Active Substance: LEVONORGESTREL
     Indication: CONTRACEPTION
     Dosage: 20 MCG/24HR, CONT
     Route: 015
     Dates: start: 20120214, end: 20130614

REACTIONS (14)
  - Device dislocation [None]
  - Genital haemorrhage [None]
  - Pain [None]
  - General physical health deterioration [None]
  - Anhedonia [None]
  - Emotional distress [None]
  - Anxiety [None]
  - Device difficult to use [None]
  - Device defective [None]
  - Device issue [None]
  - Abdominal pain upper [None]
  - Device dislocation [None]
  - Abdominal pain lower [None]
  - Injury [None]

NARRATIVE: CASE EVENT DATE: 201208
